FAERS Safety Report 4770955-4 (Version None)
Quarter: 2005Q3

REPORT INFORMATION
  Report Type: 
  Country: None (occurrence: None)
  Receive Date: 20050915
  Receipt Date: 20050909
  Transmission Date: 20060218
  Serious: Yes (Other)
  Sender: FDA-Public Use
  Company Number: 200516520US

PATIENT
  Sex: Male

DRUGS (2)
  1. ALLEGRA [Suspect]
     Indication: SEASONAL ALLERGY
     Route: 048
     Dates: start: 20050512, end: 20050610
  2. PROVENTIL [Concomitant]
     Dosage: DOSE: UNK

REACTIONS (1)
  - SUNBURN [None]
